FAERS Safety Report 18637624 (Version 2)
Quarter: 2021Q1

REPORT INFORMATION
  Report Type: Spontaneous
  Country: US (occurrence: US)
  Receive Date: 20201218
  Receipt Date: 20210211
  Transmission Date: 20210419
  Serious: No
  Sender: FDA-Public Use
  Company Number: US-ASTRAZENECA-2020SF57765

PATIENT
  Age: 25765 Day
  Sex: Female
  Weight: 72.6 kg

DRUGS (1)
  1. BYDUREON BCISE [Suspect]
     Active Substance: EXENATIDE
     Indication: DIABETES MELLITUS
     Route: 058
     Dates: start: 202002

REACTIONS (7)
  - Injection site haemorrhage [Recovered/Resolved]
  - Wrong technique in device usage process [Unknown]
  - Injection site extravasation [Unknown]
  - Device issue [Unknown]
  - Device use error [Unknown]
  - Drug dose omission by device [Unknown]
  - Device delivery system issue [Unknown]

NARRATIVE: CASE EVENT DATE: 20201118
